FAERS Safety Report 6137484-7 (Version None)
Quarter: 2009Q1

REPORT INFORMATION
  Report Type: 
  Country: None (occurrence: None)
  Receive Date: 20090326
  Receipt Date: 20090316
  Transmission Date: 20090719
  Serious: Yes (Hospitalization)
  Sender: FDA-Public Use
  Company Number: ADE2009-0492

PATIENT
  Age: 75 Year
  Sex: Female

DRUGS (7)
  1. GABAPENTIN [Suspect]
     Indication: ARTHRALGIA
     Dosage: 300MG - 3 X DAILY,
  2. DICLOFENAC [Concomitant]
  3. TRAMADOL [Concomitant]
  4. DIHYDROCODEINE BITARTRATE INJ [Concomitant]
  5. FUROSEMODE [Concomitant]
  6. AMLODIPINE [Concomitant]
  7. IRDESARTAN [Concomitant]

REACTIONS (10)
  - BILIARY TRACT INFECTION [None]
  - DRUG INEFFECTIVE [None]
  - DRUG TOXICITY [None]
  - FALL [None]
  - HAEMODIALYSIS [None]
  - MYOCLONUS [None]
  - RENAL FAILURE ACUTE [None]
  - SEPTIC SHOCK [None]
  - THERAPEUTIC AGENT TOXICITY [None]
  - URAEMIC ENCEPHALOPATHY [None]
